FAERS Safety Report 5683976-4 (Version None)
Quarter: 2008Q1

REPORT INFORMATION
  Report Type: 
  Country: None (occurrence: None)
  Receive Date: 20080328
  Receipt Date: 20080320
  Transmission Date: 20080703
  Serious: Yes (Death, Life-Threatening, Hospitalization)
  Sender: FDA-Public Use
  Company Number: DE-ABBOTT-08P-062-0443243-00

PATIENT
  Age: 57 Year
  Sex: Female
  Weight: 64 kg

DRUGS (6)
  1. HUMIRA [Suspect]
     Indication: RHEUMATOID ARTHRITIS
     Route: 058
     Dates: start: 20070206, end: 20080201
  2. METHOTREXATE [Concomitant]
     Indication: RHEUMATOID ARTHRITIS
     Dates: start: 20040402, end: 20080201
  3. PREDNISOLONE [Concomitant]
     Indication: RHEUMATOID ARTHRITIS
     Route: 048
     Dates: end: 20080310
  4. NON STEROIDAL ANTIRHEUMATIC DRUG [Concomitant]
     Indication: RHEUMATOID ARTHRITIS
     Dates: end: 20080101
  5. DICLOFENAC SODIUM [Concomitant]
     Indication: RHEUMATOID ARTHRITIS
     Route: 048
     Dates: end: 20080310
  6. RISEDRONATE SODIUM [Concomitant]
     Indication: OSTEOPOROSIS
     Route: 048
     Dates: start: 20070116, end: 20080215

REACTIONS (3)
  - ACUTE RESPIRATORY DISTRESS SYNDROME [None]
  - DEATH [None]
  - PNEUMONIA [None]
